FAERS Safety Report 14351657 (Version 2)
Quarter: 2018Q1

REPORT INFORMATION
  Report Type: Spontaneous
  Country: CA (occurrence: CA)
  Receive Date: 20180104
  Receipt Date: 20180305
  Transmission Date: 20180509
  Serious: Yes (Other)
  Sender: FDA-Public Use
  Company Number: CA-SA-2017SA268455

PATIENT
  Age: 50 Year
  Sex: Female

DRUGS (11)
  1. HYDROXYCHLOROQUINE SULFATE. [Suspect]
     Active Substance: HYDROXYCHLOROQUINE SULFATE
     Route: 048
  2. PLAQUENIL [Concomitant]
     Active Substance: HYDROXYCHLOROQUINE SULFATE
     Indication: EYE DISORDER
     Route: 065
  3. ARAVA [Concomitant]
     Active Substance: LEFLUNOMIDE
     Route: 065
  4. ENBREL [Suspect]
     Active Substance: ETANERCEPT
     Indication: RHEUMATOID ARTHRITIS
     Route: 065
  5. ORENCIA [Suspect]
     Active Substance: ABATACEPT
     Indication: RHEUMATOID ARTHRITIS
     Route: 065
     Dates: end: 20160805
  6. SULFASALAZINE. [Suspect]
     Active Substance: SULFASALAZINE
     Indication: RHEUMATOID ARTHRITIS
     Route: 065
  7. SODIUM AUROTHIOMALATE [Suspect]
     Active Substance: GOLD SODIUM THIOMALATE
     Route: 051
  8. ABATACEPT [Suspect]
     Active Substance: ABATACEPT
     Route: 065
  9. METHOTREXATE. [Concomitant]
     Active Substance: METHOTREXATE
     Indication: RHEUMATOID ARTHRITIS
     Route: 058
  10. SIMPONI [Suspect]
     Active Substance: GOLIMUMAB
     Indication: RHEUMATOID ARTHRITIS
     Dosage: FORM:SOLUTION?SUBCUTANEOUS
     Route: 065
  11. LEFLUNOMIDE. [Suspect]
     Active Substance: LEFLUNOMIDE
     Indication: PRODUCT USED FOR UNKNOWN INDICATION
     Route: 048
     Dates: start: 2014, end: 201611

REACTIONS (6)
  - Hypertension [Unknown]
  - Impaired work ability [Unknown]
  - Treatment failure [Unknown]
  - Hip arthroplasty [Unknown]
  - Pain [Unknown]
  - Drug ineffective [Unknown]
